FAERS Safety Report 11813806 (Version 1)
Quarter: 2015Q4

REPORT INFORMATION
  Report Type: Spontaneous
  Country: US (occurrence: None)
  Receive Date: 20151208
  Receipt Date: 20151208
  Transmission Date: 20160305
  Serious: No
  Sender: FDA-Public Use
  Company Number: None

PATIENT
  Age: 17 Year
  Sex: Female
  Weight: 49.7 kg

DRUGS (1)
  1. HEPARIN SODIUM 10,000 UNITS/10 ML SAGENT [Suspect]
     Active Substance: HEPARIN SODIUM
     Dosage: 8,000 UNITS
     Route: 042
     Dates: start: 20151030, end: 20151030

REACTIONS (3)
  - Drug effect increased [None]
  - Coagulation time prolonged [None]
  - Product quality issue [None]

NARRATIVE: CASE EVENT DATE: 20151030
